FAERS Safety Report 7037950-6 (Version None)
Quarter: 2010Q4

REPORT INFORMATION
  Report Type: 
  Country: None (occurrence: None)
  Receive Date: 20101011
  Receipt Date: 20100928
  Transmission Date: 20110411
  Serious: Yes (Other)
  Sender: FDA-Public Use
  Company Number: US-AMGEN-KDL442731

PATIENT
  Sex: Female
  Weight: 59 kg

DRUGS (2)
  1. PROCRIT [Suspect]
     Indication: ANAEMIA
     Route: 058
     Dates: start: 20071101
  2. ALLOPURINOL [Concomitant]

REACTIONS (10)
  - ABASIA [None]
  - ASTHENIA [None]
  - BLOOD CREATININE INCREASED [None]
  - COLD SWEAT [None]
  - HYPERHIDROSIS [None]
  - INCOHERENT [None]
  - LETHARGY [None]
  - MUSCULAR WEAKNESS [None]
  - PYREXIA [None]
  - WHITE BLOOD CELL COUNT INCREASED [None]
